FAERS Safety Report 10475807 (Version 1)
Quarter: 2014Q3

REPORT INFORMATION
  Report Type: Spontaneous
  Country: US (occurrence: US)
  Receive Date: 20140925
  Receipt Date: 20140925
  Transmission Date: 20150326
  Serious: No
  Sender: FDA-Public Use
  Company Number: US-GLAXOSMITHKLINE-A1065398A

PATIENT
  Age: 58 Year
  Sex: Female

DRUGS (6)
  1. DIOVAN [Concomitant]
     Active Substance: VALSARTAN
  2. COREG CR [Suspect]
     Active Substance: CARVEDILOL PHOSPHATE
     Indication: SYSTOLIC HYPERTENSION
     Dosage: 10MG PER DAY
     Route: 048
     Dates: start: 201309
  3. CARVEDILOL. [Suspect]
     Active Substance: CARVEDILOL
     Indication: SYSTOLIC HYPERTENSION
     Route: 065
  4. AMLODIPINE [Concomitant]
     Active Substance: AMLODIPINE BESYLATE
  5. BAYER ASPIRIN [Concomitant]
     Active Substance: ASPIRIN
  6. VITAMINS WITH IRON [Concomitant]

REACTIONS (8)
  - Dysstasia [Unknown]
  - Balance disorder [Unknown]
  - Product substitution issue [Unknown]
  - Condition aggravated [Unknown]
  - Faeces discoloured [Unknown]
  - Vision blurred [Unknown]
  - Bedridden [Unknown]
  - Back pain [Recovering/Resolving]

NARRATIVE: CASE EVENT DATE: 201309
